FAERS Safety Report 14800981 (Version 6)
Quarter: 2018Q3

REPORT INFORMATION
  Report Type: Spontaneous
  Country: GB (occurrence: GB)
  Receive Date: 20180424
  Receipt Date: 20180831
  Transmission Date: 20181010
  Serious: Yes (Death, Hospitalization)
  Sender: FDA-Public Use
  Company Number: GB-PFIZER INC-2018161749

PATIENT
  Age: 63 Year
  Sex: Male

DRUGS (1)
  1. GEMCITABINE HYDROCHLORIDE. [Suspect]
     Active Substance: GEMCITABINE HYDROCHLORIDE
     Indication: PANCREATIC CARCINOMA
     Dosage: 2100 MG, CYCLIC (1000 MG/M2 TO THE NEAREST 38 MG AS 2100 MG GIVEN ON DAY 1, 8, 15 ON A 28?DAY CYCLE)
     Route: 042

REACTIONS (2)
  - Cardiotoxicity [Recovering/Resolving]
  - Cardiomyopathy [Recovering/Resolving]
